FAERS Safety Report 8806499 (Version 1)
Quarter: 2012Q4

REPORT INFORMATION
  Report Type: 
  Country: AU (occurrence: AU)
  Receive Date: 20120925
  Receipt Date: 20120925
  Transmission Date: 20130627
  Serious: Yes (Disabling)
  Sender: FDA-Public Use
  Company Number: AU-009507513-1209AUS005206

PATIENT
  Age: 73 Year
  Sex: Male

DRUGS (10)
  1. ONCOTICE [Suspect]
     Indication: BLADDER CANCER
  2. MIRTAZAPINE DP [Concomitant]
  3. WARFARIN [Concomitant]
  4. LEVOTHYROXINE SODIUM [Concomitant]
  5. RISEDRONATE SODIUM [Concomitant]
  6. OXYCODONE [Concomitant]
  7. ACETAMINOPHEN [Concomitant]
  8. CODEINE [Concomitant]
  9. CALCIUM (UNSPECIFIED) [Concomitant]
  10. VITAMIN D (UNSPECIFIED) [Concomitant]

REACTIONS (1)
  - Arthritis reactive [Recovered/Resolved]
